FAERS Safety Report 25966736 (Version 2)
Quarter: 2025Q4

REPORT INFORMATION
  Report Type: Spontaneous
  Country: US (occurrence: None)
  Receive Date: 20251028
  Receipt Date: 20251217
  Transmission Date: 20260117
  Serious: No
  Sender: UCB
  Company Number: US-UCBSA-2025034394

PATIENT
  Age: 29 Year

DRUGS (2)
  1. BIMZELX [Suspect]
     Active Substance: BIMEKIZUMAB-BKZX
     Indication: Hidradenitis
     Dosage: 320 MILLIGRAM, EV 2 WEEKS(QOW)
  2. BIMZELX [Suspect]
     Active Substance: BIMEKIZUMAB-BKZX
     Dosage: 320 MILLIGRAM, EV 4 WEEKS

REACTIONS (7)
  - Pain [Unknown]
  - Injection site pain [Unknown]
  - Decreased appetite [Unknown]
  - Fatigue [Unknown]
  - Headache [Unknown]
  - Hidradenitis [Unknown]
  - Condition aggravated [Unknown]
